FAERS Safety Report 12368943 (Version 1)
Quarter: 2016Q2

REPORT INFORMATION
  Report Type: Spontaneous
  Country: RO (occurrence: RO)
  Receive Date: 20160513
  Receipt Date: 20160513
  Transmission Date: 20160815
  Serious: Yes (Hospitalization)
  Sender: FDA-Public Use
  Company Number: RO-SUN PHARMACEUTICAL INDUSTRIES LTD-2016RR-116510

PATIENT
  Age: 52 Year
  Sex: Female

DRUGS (3)
  1. DESLORATADINA [Suspect]
     Active Substance: DESLORATADINE
     Indication: GRANULOMA ANNULARE
     Dosage: 1 CP/DAY IN THE MORNING
     Route: 065
  2. BETAMETHASONE DIPROPIONATE/ SALICYLIC ACID [Suspect]
     Active Substance: BETAMETHASONE DIPROPIONATE\SALICYLIC ACID
     Indication: GRANULOMA ANNULARE
     Dosage: 0.50MG/ 30MG, 1 APPLICATION/DAY
     Route: 061
  3. DOXYCYCLINE. [Suspect]
     Active Substance: DOXYCYCLINE
     Indication: GRANULOMA ANNULARE
     Dosage: 100 MG, DAILY
     Route: 065

REACTIONS (1)
  - Drug effect incomplete [Unknown]
